FAERS Safety Report 4400653-8 (Version None)
Quarter: 2004Q3

REPORT INFORMATION
  Report Type: 
  Country: None (occurrence: None)
  Receive Date: 20040714
  Receipt Date: 20040701
  Transmission Date: 20050211
  Serious: Yes (Hospitalization, Disabling, Other)
  Sender: FDA-Public Use
  Company Number: HQWYE337302APR04

PATIENT
  Age: 81 Year
  Sex: Male

DRUGS (3)
  1. CORDARONE [Suspect]
     Indication: ATRIAL FIBRILLATION
     Dosage: 200 MG 5X PER 1 WK ORAL/^ABOUT 10 YEARS^
     Route: 048
     Dates: start: 19940101
  2. KARDEGIC (ACETYLSALICYLIC LYSINE) [Concomitant]
  3. FLUVASTATIN (FLUVASTATIN) [Concomitant]

REACTIONS (1)
  - CEREBELLAR SYNDROME [None]
